FAERS Safety Report 13302699 (Version 2)
Quarter: 2017Q2

REPORT INFORMATION
  Report Type: Report from Study
  Country: GB (occurrence: GB)
  Receive Date: 20170307
  Receipt Date: 20170404
  Transmission Date: 20170830
  Serious: Yes (Other)
  Sender: FDA-Public Use
  Company Number: PHHY2017GB034453

PATIENT
  Age: 32 Year
  Sex: Female

DRUGS (1)
  1. TASIGNA [Suspect]
     Active Substance: NILOTINIB
     Indication: CHRONIC MYELOID LEUKAEMIA
     Route: 048

REACTIONS (4)
  - Hyperkeratosis [Unknown]
  - Non-cardiac chest pain [Unknown]
  - Hordeolum [Unknown]
  - Pyogenic granuloma [Unknown]

NARRATIVE: CASE EVENT DATE: 20140226
